FAERS Safety Report 7222574-8 (Version None)
Quarter: 2010Q4

REPORT INFORMATION
  Report Type: 
  Country: None (occurrence: None)
  Receive Date: 20101227
  Receipt Date: 20101130
  Transmission Date: 20110411
  Serious: Yes (Other)
  Sender: FDA-Public Use
  Company Number: OMX-2010-00145

PATIENT

DRUGS (2)
  1. EVICEL [Suspect]
     Indication: SURGERY
  2. APPLICATOR [Concomitant]

REACTIONS (2)
  - DRUG EFFECT DECREASED [None]
  - POST PROCEDURAL HAEMORRHAGE [None]
